FAERS Safety Report 20374433 (Version 1)
Quarter: 2022Q1

REPORT INFORMATION
  Report Type: Spontaneous
  Country: US (occurrence: US)
  Receive Date: 20220125
  Receipt Date: 20220125
  Transmission Date: 20220424
  Serious: Yes (Other)
  Sender: FDA-Public Use
  Company Number: US-PFIZER INC-202200080753

PATIENT
  Age: 42 Year
  Sex: Female

DRUGS (1)
  1. CEFEPIME HYDROCHLORIDE [Suspect]
     Active Substance: CEFEPIME HYDROCHLORIDE
     Dosage: UNK UNK, 3X/DAY (EVERY 8 HOURS)

REACTIONS (3)
  - Neurotoxicity [Recovered/Resolved]
  - Mental status changes [Recovered/Resolved]
  - Antibiotic level above therapeutic [Unknown]
